FAERS Safety Report 9747241 (Version 4)
Quarter: 2014Q1

REPORT INFORMATION
  Report Type: Spontaneous
  Country: JP (occurrence: JP)
  Receive Date: 20131212
  Receipt Date: 20140107
  Transmission Date: 20141002
  Serious: Yes (Other)
  Sender: FDA-Public Use
  Company Number: JP-ROCHE-1308265

PATIENT
  Age: 64 Year
  Sex: Female
  Weight: 31 kg

DRUGS (15)
  1. HERCEPTIN [Suspect]
     Indication: BREAST CANCER METASTATIC
     Route: 041
     Dates: start: 20120128, end: 20130910
  2. HERCEPTIN [Suspect]
     Indication: BREAST CANCER METASTATIC
     Route: 041
     Dates: start: 20131009, end: 20131009
  3. HERCEPTIN [Suspect]
     Route: 041
     Dates: start: 20071009
  4. HERCEPTIN [Suspect]
     Dosage: 6 MG/KG TO 8 MG/KG
     Route: 041
     Dates: start: 20080407, end: 20090407
  5. HERCEPTIN [Suspect]
     Route: 041
     Dates: start: 20110702, end: 20110920
  6. PERJETA [Suspect]
     Indication: BREAST CANCER METASTATIC
     Route: 041
     Dates: start: 20131010, end: 20131010
  7. XELODA [Suspect]
     Indication: BREAST CANCER METASTATIC
     Route: 048
     Dates: start: 20111012, end: 20121219
  8. XELODA [Suspect]
     Indication: BREAST CANCER METASTATIC
     Route: 048
     Dates: start: 20120128, end: 20120401
  9. TAXOTERE [Suspect]
     Indication: BREAST CANCER METASTATIC
     Route: 041
     Dates: start: 20071009
  10. PACLITAXEL [Concomitant]
     Indication: BREAST CANCER METASTATIC
     Route: 041
     Dates: start: 20131010, end: 20131010
  11. NAVELBINE [Concomitant]
     Indication: BREAST CANCER METASTATIC
     Route: 042
     Dates: start: 20110702, end: 20110920
  12. TYKERB [Concomitant]
     Indication: BREAST CANCER METASTATIC
     Route: 048
     Dates: start: 20111012, end: 20121219
  13. TS-1 [Concomitant]
     Indication: BREAST CANCER METASTATIC
     Route: 048
     Dates: start: 20130402, end: 20130826
  14. FASLODEX [Concomitant]
     Indication: BREAST CANCER METASTATIC
     Route: 030
  15. FASLODEX [Concomitant]
     Route: 048
     Dates: start: 20130402, end: 20130826

REACTIONS (5)
  - Ejection fraction decreased [Not Recovered/Not Resolved]
  - Subarachnoid haemorrhage [Recovered/Resolved]
  - Staphylococcal sepsis [Unknown]
  - Xeroderma [Recovered/Resolved]
  - Hyperlipidaemia [Not Recovered/Not Resolved]
